FAERS Safety Report 10220571 (Version 1)
Quarter: 2014Q2

REPORT INFORMATION
  Report Type: Spontaneous
  Country: FR (occurrence: FR)
  Receive Date: 20140606
  Receipt Date: 20140606
  Transmission Date: 20141212
  Serious: Yes (Hospitalization)
  Sender: FDA-Public Use
  Company Number: FR-CELGENEUS-056-20785-14054558

PATIENT
  Age: 55 Year
  Sex: Male

DRUGS (3)
  1. THALIDOMIDE CELGENE [Suspect]
     Indication: PLASMA CELL MYELOMA
     Route: 048
     Dates: start: 201211, end: 201211
  2. VELCADE [Suspect]
     Indication: PLASMA CELL MYELOMA
     Route: 050
     Dates: start: 201211, end: 20130225
  3. DEXAMETHASONE [Suspect]
     Indication: PLASMA CELL MYELOMA
     Route: 041
     Dates: start: 201211, end: 20130225

REACTIONS (1)
  - Pulmonary arterial hypertension [Unknown]
